FAERS Safety Report 5025671-0 (Version None)
Quarter: 2006Q2

REPORT INFORMATION
  Report Type: 
  Country: None (occurrence: None)
  Receive Date: 20060426
  Receipt Date: 20060110
  Transmission Date: 20061013
  Serious: Yes (Hospitalization, Other)
  Sender: FDA-Public Use
  Company Number: 2005172428

PATIENT
  Age: 65 Year
  Sex: Male
  Weight: 102 kg

DRUGS (11)
  1. LYRICA [Suspect]
     Indication: DIABETIC NEUROPATHY
     Dosage: 300 MG (150 MG, 2 IN 1 D), ORAL
     Route: 048
     Dates: start: 20051201, end: 20051218
  2. LASIX [Concomitant]
  3. ALL OTHER THERAPEUTIC PRODUCTS (ALL OTHER THERAPEUTIC PRODUCTS) [Concomitant]
  4. COMBIVENT [Concomitant]
  5. ZAROXOLYN [Concomitant]
  6. LIPITOR [Concomitant]
  7. VICODIN [Concomitant]
  8. POTASSIUM (POTASSIUM) [Concomitant]
  9. PREVACID [Concomitant]
  10. INSULIN [Concomitant]
  11. ALTACE [Concomitant]

REACTIONS (2)
  - ANAPHYLACTIC REACTION [None]
  - FACE OEDEMA [None]
